FAERS Safety Report 23594494 (Version 1)
Quarter: 2024Q1

REPORT INFORMATION
  Report Type: Spontaneous
  Country: US (occurrence: US)
  Receive Date: 20240305
  Receipt Date: 20240305
  Transmission Date: 20240410
  Serious: Yes (Other)
  Sender: FDA-Public Use
  Company Number: US-AMGEN-USASP2024042013

PATIENT
  Age: 86 Year
  Sex: Male

DRUGS (1)
  1. REPATHA [Suspect]
     Active Substance: EVOLOCUMAB
     Indication: Product used for unknown indication
     Dosage: UNK
     Route: 065

REACTIONS (7)
  - Diabetes mellitus [Unknown]
  - Nephropathy [Unknown]
  - Cardiac disorder [Unknown]
  - Musculoskeletal disorder [Unknown]
  - Trigger finger [Unknown]
  - Confusional state [Unknown]
  - Memory impairment [Unknown]
